FAERS Safety Report 6318253-1 (Version None)
Quarter: 2009Q3

REPORT INFORMATION
  Report Type: 
  Country: None (occurrence: None)
  Receive Date: 20090821
  Receipt Date: 20090817
  Transmission Date: 20100115
  Serious: Yes (Death, Hospitalization)
  Sender: FDA-Public Use
  Company Number: FR-ROCHE-650869

PATIENT
  Sex: Female

DRUGS (12)
  1. CAPECITABINE [Suspect]
     Indication: GASTRIC CANCER
     Dosage: DOSE: CYCLE 1 (3 COURSES)
     Route: 065
     Dates: start: 20060912
  2. CAPECITABINE [Suspect]
     Dosage: DOSE: CYCLE 2 (3 COURSES)
     Route: 065
     Dates: start: 20061114
  3. IRINOTECAN HCL [Suspect]
     Indication: GASTRIC CANCER
     Dosage: DOSE: 1 CYCLE (2 COURSES), FORM: CONCENTRATE FOR SOLUTION FOR INFUSION
     Route: 065
     Dates: start: 20070528
  4. EPIRUBICIN HCL [Suspect]
     Indication: GASTRIC CANCER
     Dosage: DOSE: CYCLE 1 (3 COURSES).
     Route: 065
     Dates: start: 20060912
  5. EPIRUBICIN HCL [Suspect]
     Dosage: DOSE: CYCLE 2 (3 COURSES).
     Route: 065
     Dates: start: 20061114
  6. EPIRUBICIN HCL [Suspect]
     Dosage: DOSE: CYCLE 4 (1 COURSE)
     Route: 065
     Dates: start: 20070131
  7. CISPLATIN [Suspect]
     Indication: GASTRIC CANCER
     Dosage: DOSE: CYCLE 1 (3 COURSES)
     Route: 065
     Dates: start: 20060912
  8. CISPLATIN [Suspect]
     Dosage: DOSE: CYCLE 2
     Route: 065
     Dates: start: 20061114
  9. CISPLATIN [Suspect]
     Dosage: DOSE: CYCLE 3 (3 COURSES)
     Route: 065
     Dates: start: 20070131
  10. CISPLATIN [Suspect]
     Dosage: DOSE: CYCLE 4 (1 COURSE)
     Route: 065
     Dates: start: 20070419
  11. FLUOROURACIL [Suspect]
     Indication: GASTRIC CANCER
     Dosage: DOSE:  1 CYCLE (2 COURSES), FORM: SOLUTION FOR INFUSION
     Route: 065
     Dates: start: 20070528
  12. FOLINIC ACID [Suspect]
     Indication: GASTRIC CANCER
     Dosage: DOSE: 1 CYCLE (2 COURSES).
     Route: 065
     Dates: start: 20090528

REACTIONS (13)
  - ALTERED STATE OF CONSCIOUSNESS [None]
  - APHASIA [None]
  - CONFUSIONAL STATE [None]
  - CONVULSION [None]
  - DEATH [None]
  - GENERAL PHYSICAL HEALTH DETERIORATION [None]
  - ILL-DEFINED DISORDER [None]
  - METASTATIC GASTRIC CANCER [None]
  - MYELODYSPLASTIC SYNDROME [None]
  - PAIN [None]
  - PLEURAL EFFUSION [None]
  - PYREXIA [None]
  - THROMBOCYTOPENIA [None]
